FAERS Safety Report 10759604 (Version 1)
Quarter: 2015Q1

REPORT INFORMATION
  Report Type: Spontaneous
  Country: US (occurrence: US)
  Receive Date: 20150203
  Receipt Date: 20150203
  Transmission Date: 20150721
  Serious: No
  Sender: FDA-Public Use
  Company Number: US-GLAXOSMITHKLINE-A1084457A

PATIENT
  Age: 59 Year
  Sex: Male

DRUGS (3)
  1. NICORETTE [Suspect]
     Active Substance: NICOTINE
     Indication: SMOKING CESSATION THERAPY
     Route: 048
     Dates: end: 20140807
  2. NICOTINE UNKNOWN BRAND LOZENGE [Suspect]
     Active Substance: NICOTINE
     Indication: SMOKING CESSATION THERAPY
     Dosage: 2 MG, UNK
     Route: 048
  3. NICORETTE [Suspect]
     Active Substance: NICOTINE
     Dosage: UNK

REACTIONS (3)
  - Drug administration error [Unknown]
  - Malaise [Recovered/Resolved]
  - Drug ineffective [Unknown]
